FAERS Safety Report 7407048-3 (Version None)
Quarter: 2011Q2

REPORT INFORMATION
  Report Type: 
  Country: None (occurrence: None)
  Receive Date: 20110411
  Receipt Date: 20110401
  Transmission Date: 20111010
  Serious: Yes (Hospitalization, Disabling, Other)
  Sender: FDA-Public Use
  Company Number: US-ROCHE-541238

PATIENT
  Sex: Female
  Weight: 67 kg

DRUGS (2)
  1. ORAL CONTRACEPTIVES NOS [Concomitant]
  2. ACCUTANE [Suspect]
     Indication: ACNE
     Dosage: ALTERNATING DOSE 40MG/80MG
     Route: 065
     Dates: start: 19990914, end: 20000508

REACTIONS (23)
  - DEPRESSION [None]
  - ANXIETY [None]
  - RHEUMATOID ARTHRITIS [None]
  - HAEMORRHOIDS [None]
  - EATING DISORDER [None]
  - BLOOD TRIGLYCERIDES INCREASED [None]
  - BACK PAIN [None]
  - SMALL INTESTINAL OBSTRUCTION [None]
  - COLITIS [None]
  - ACNE [None]
  - DIARRHOEA [None]
  - DRUG DEPENDENCE [None]
  - INFLAMMATORY BOWEL DISEASE [None]
  - IRON DEFICIENCY ANAEMIA [None]
  - INTERVERTEBRAL DISC DEGENERATION [None]
  - ABDOMINAL PAIN [None]
  - CROHN'S DISEASE [None]
  - SMALL INTESTINAL STENOSIS [None]
  - EMOTIONAL DISTRESS [None]
  - CELLULITIS [None]
  - CHEST PAIN [None]
  - INSOMNIA [None]
  - IRRITABLE BOWEL SYNDROME [None]
